FAERS Safety Report 14701802 (Version 1)
Quarter: 2018Q1

REPORT INFORMATION
  Report Type: Spontaneous
  Country: US (occurrence: US)
  Receive Date: 20180331
  Receipt Date: 20180331
  Transmission Date: 20180509
  Serious: No
  Sender: FDA-Public Use
  Company Number: US-JNJFOC-20180318657

PATIENT
  Age: 8 Year
  Sex: Female
  Weight: 31.75 kg

DRUGS (4)
  1. IBUPROFEN. [Suspect]
     Active Substance: IBUPROFEN
     Indication: HYPERSENSITIVITY
     Route: 065
     Dates: start: 20180127
  2. NTG SPORT FACE SUNSCREEN LOTION SPF70+ [Concomitant]
     Indication: PRODUCT USED FOR UNKNOWN INDICATION
     Route: 065
  3. BENADRYL [Suspect]
     Active Substance: DIPHENHYDRAMINE HYDROCHLORIDE
     Indication: HYPERSENSITIVITY
     Route: 065
     Dates: start: 20180127, end: 20180127
  4. IBUPROFEN. [Suspect]
     Active Substance: IBUPROFEN
     Route: 065

REACTIONS (2)
  - Product use in unapproved indication [Unknown]
  - Therapeutic response unexpected [Unknown]

NARRATIVE: CASE EVENT DATE: 20180127
